FAERS Safety Report 4489230-0 (Version None)
Quarter: 2004Q4

REPORT INFORMATION
  Report Type: 
  Country: None (occurrence: None)
  Receive Date: 20041028
  Receipt Date: 20041027
  Transmission Date: 20050328
  Serious: Yes (Other)
  Sender: FDA-Public Use
  Company Number: 003054

PATIENT
  Age: 43 Year
  Sex: Male
  Weight: 63.5 kg

DRUGS (5)
  1. MIRTAZAPINE [Suspect]
     Indication: INSOMNIA
     Dosage: 15.00 MG, QHS, ORAL
     Route: 048
     Dates: start: 20041011, end: 20041022
  2. TRILEPTAL ^NOVARTIS^ (OXCARBAZEPINE) [Concomitant]
  3. PAXIL [Concomitant]
  4. XANAX [Concomitant]
  5. ALLEGRA [Concomitant]

REACTIONS (3)
  - DISTURBANCE IN SOCIAL BEHAVIOUR [None]
  - GRAND MAL CONVULSION [None]
  - MANIA [None]
